FAERS Safety Report 6566306-5 (Version None)
Quarter: 2010Q1

REPORT INFORMATION
  Report Type: 
  Country: None (occurrence: None)
  Receive Date: 20100202
  Receipt Date: 20100121
  Transmission Date: 20100710
  Serious: Yes (Hospitalization, Other)
  Sender: FDA-Public Use
  Company Number: US-ELI_LILLY_AND_COMPANY-US201001004682

PATIENT
  Sex: Male

DRUGS (5)
  1. FORTEO [Suspect]
     Dosage: 20 UG, UNK
     Dates: start: 20091202, end: 20100114
  2. OXYGEN [Concomitant]
  3. MUCINEX [Concomitant]
  4. PREDNISONE [Concomitant]
  5. SYMBICORT [Concomitant]

REACTIONS (3)
  - HOSPITALISATION [None]
  - LOSS OF CONSCIOUSNESS [None]
  - STENT PLACEMENT [None]
